FAERS Safety Report 7129609-1 (Version None)
Quarter: 2010Q4

REPORT INFORMATION
  Report Type: 
  Country: None (occurrence: None)
  Receive Date: 20101130
  Receipt Date: 20101123
  Transmission Date: 20110411
  Serious: Yes (Death, Hospitalization, Other)
  Sender: FDA-Public Use
  Company Number: PHHY2010US73330

PATIENT
  Sex: Female
  Weight: 85 kg

DRUGS (27)
  1. EXJADE [Suspect]
     Indication: IRON OVERLOAD
     Dosage: 500 MG, UNK
     Route: 048
     Dates: start: 20091230, end: 20101016
  2. EXJADE [Suspect]
     Indication: NEOPLASM
     Dosage: 1500 MG, QD
     Route: 048
     Dates: start: 20100101, end: 20101001
  3. PLATELETS [Concomitant]
     Dosage: 1 UNIT, UNK
     Dates: start: 20101106
  4. MYORELAX [Concomitant]
     Dosage: 17 G, DAILY
     Route: 048
  5. SENOKOT [Concomitant]
     Dosage: 2 DF, BID
  6. DECITABINE [Concomitant]
     Dosage: UNK
     Dates: start: 20090701, end: 20100101
  7. AZACITIDINE [Concomitant]
     Dosage: UNK
     Dates: start: 20100701
  8. DEXAMETHASONE [Concomitant]
     Dosage: 4 MG, UNK
     Route: 042
  9. FENTANYL CITRATE [Concomitant]
     Dosage: 100MCG/HR TD EVERY 72 HOURS
     Route: 062
  10. FENTANYL CITRATE [Concomitant]
     Dosage: 125MH/HR TD EVERY 72 HOURS
     Route: 062
  11. FENTANYL CITRATE [Concomitant]
     Dosage: 50 MCG/HR TDM 1 PATCH TD EVERY 3 DAYS
     Route: 062
     Dates: start: 20101028
  12. CALCIUM [Concomitant]
     Dosage: 600 MG, QD
     Route: 048
     Dates: start: 20100518
  13. ACETAMINOPHEN [Concomitant]
     Dosage: 1 DF, PRN
     Route: 048
     Dates: start: 20090519
  14. ACYCLOVIR SODIUM [Concomitant]
     Dosage: 200 MG, 5QD
     Route: 048
     Dates: start: 20101018
  15. OMEPRAZOLE [Concomitant]
     Dosage: 40 MG, BID
     Route: 048
     Dates: start: 20101028
  16. NITROGLYCERIN [Concomitant]
     Dosage: 1 TAB SL Q 5 MIN X 3 PRN
     Dates: start: 20090415
  17. METOPROLOL [Concomitant]
     Dosage: 1 DF, BID
     Route: 048
     Dates: start: 20101019
  18. SIMVASTATIN [Concomitant]
     Dosage: 1 DF, QD
     Route: 048
  19. METFORMIN [Concomitant]
     Dosage: 2 DF, QD
     Route: 048
     Dates: start: 20101019
  20. FLUCONAZOLE [Concomitant]
     Dosage: 200 MG, QD
     Route: 048
  21. ASPIRIN [Concomitant]
     Dosage: 1 DF, QD
     Route: 048
     Dates: start: 20080513
  22. MULTI-VITAMINS [Concomitant]
     Dosage: 1 DF, DAILY
     Route: 048
     Dates: start: 20080513
  23. DULCOLAX [Concomitant]
     Dosage: 10 MG, QD
     Route: 048
  24. MIRALAX [Concomitant]
     Dosage: 17 MG, BID
     Route: 048
  25. PREDNISONE [Concomitant]
     Dosage: 40 MG, QD
     Route: 048
  26. BACTRIM [Concomitant]
     Dosage: 1 DF, QD ON MONDAY, WEDNESDAY + FRIDAY
     Route: 048
  27. SENNA-S (DOCUSATE SODIUM/SENNOSIDES) [Concomitant]
     Dosage: 3 DF, BID
     Route: 048

REACTIONS (37)
  - ABDOMINAL PAIN UPPER [None]
  - ACUTE MYELOID LEUKAEMIA [None]
  - APNOEIC ATTACK [None]
  - ARRHYTHMIA [None]
  - ARTHRALGIA [None]
  - BACK PAIN [None]
  - BLOOD PRESSURE INCREASED [None]
  - BODY TEMPERATURE INCREASED [None]
  - BONE PAIN [None]
  - CHEST PAIN [None]
  - CHILLS [None]
  - CREATININE RENAL CLEARANCE DECREASED [None]
  - CYANOSIS [None]
  - DEHYDRATION [None]
  - DISCOMFORT [None]
  - DYSPHAGIA [None]
  - DYSPNOEA [None]
  - ECCHYMOSIS [None]
  - FATIGUE [None]
  - GASTRITIS [None]
  - GENERAL PHYSICAL HEALTH DETERIORATION [None]
  - GLOMERULAR FILTRATION RATE DECREASED [None]
  - HYPOAESTHESIA [None]
  - MALIGNANT NEOPLASM PROGRESSION [None]
  - MARROW HYPERPLASIA [None]
  - MUSCULOSKELETAL CHEST PAIN [None]
  - MUSCULOSKELETAL PAIN [None]
  - NECK PAIN [None]
  - NECROSIS [None]
  - ODYNOPHAGIA [None]
  - OESOPHAGEAL CANDIDIASIS [None]
  - PAIN [None]
  - PAIN IN EXTREMITY [None]
  - PETECHIAE [None]
  - SOMNOLENCE [None]
  - TACHYCARDIA [None]
  - VERTIGO [None]
